FAERS Safety Report 16620141 (Version 2)
Quarter: 2019Q3

REPORT INFORMATION
  Report Type: Spontaneous
  Country: ES (occurrence: ES)
  Receive Date: 20190723
  Receipt Date: 20190814
  Transmission Date: 20191004
  Serious: No
  Sender: FDA-Public Use
  Company Number: ES-OTSUKA-2019_024526

PATIENT
  Age: 50 Year
  Sex: Male

DRUGS (6)
  1. JINARC [Suspect]
     Active Substance: TOLVAPTAN
     Dosage: 30 MG, QD (2ND MONTH)
     Route: 065
     Dates: end: 20190114
  2. JINARC [Suspect]
     Active Substance: TOLVAPTAN
     Dosage: 60 MG, QD (2ND MONTH)
     Route: 065
     Dates: end: 20190114
  3. JINARC [Suspect]
     Active Substance: TOLVAPTAN
     Dosage: 15 MG, QD (EIGHT HOURS LATER, AFTER MEAL, 1ST MONTH)
     Route: 048
     Dates: start: 20181108, end: 20181212
  4. JINARC [Suspect]
     Active Substance: TOLVAPTAN
     Dosage: 30 MG, QD (3RD MONTH ONWARDS)
     Route: 065
  5. JINARC [Suspect]
     Active Substance: TOLVAPTAN
     Indication: CONGENITAL CYSTIC KIDNEY DISEASE
     Dosage: 45 MG, QD (IN MORNING, FASTING, 1ST MONTH)
     Route: 048
     Dates: start: 20181108, end: 20181212
  6. JINARC [Suspect]
     Active Substance: TOLVAPTAN
     Dosage: 90 MG, QD (3RD MONTH ONWARDS)
     Route: 065

REACTIONS (2)
  - Glomerular filtration rate decreased [Unknown]
  - Polyuria [Unknown]
